FAERS Safety Report 8844217 (Version 1)
Quarter: 2012Q4

REPORT INFORMATION
  Report Type: 
  Country: US (occurrence: US)
  Receive Date: 20121016
  Receipt Date: 20121016
  Transmission Date: 20130627
  Serious: Yes (Other)
  Sender: FDA-Public Use
  Company Number: US-ASTRAZENECA-2012SE77219

PATIENT
  Age: 56 Year
  Sex: Female
  Weight: 60.8 kg

DRUGS (5)
  1. NEXIUM EERD [Suspect]
     Indication: GASTROOESOPHAGEAL REFLUX DISEASE
     Route: 048
     Dates: end: 2012
  2. PRILOSEC [Suspect]
     Indication: GASTROOESOPHAGEAL REFLUX DISEASE
     Route: 048
  3. ZETIA [Concomitant]
     Indication: BLOOD CHOLESTEROL INCREASED
     Route: 048
     Dates: start: 201209
  4. CLARITIN [Concomitant]
     Indication: MULTIPLE ALLERGIES
     Route: 048
  5. DEXALENT [Concomitant]

REACTIONS (14)
  - Uterine cyst [Unknown]
  - Upper limb fracture [Unknown]
  - Fall [Unknown]
  - Disease recurrence [Unknown]
  - Chest pain [Unknown]
  - Eructation [Unknown]
  - Sensation of foreign body [Unknown]
  - Dyspepsia [Unknown]
  - Nephrolithiasis [Unknown]
  - Plantar fasciitis [Unknown]
  - Blood cholesterol increased [Unknown]
  - Intentional drug misuse [Unknown]
  - Drug ineffective [Unknown]
  - Off label use [Unknown]
